FAERS Safety Report 20795543 (Version 1)
Quarter: 2022Q2

REPORT INFORMATION
  Report Type: Report from Study
  Country: CN (occurrence: CN)
  Receive Date: 20220506
  Receipt Date: 20220506
  Transmission Date: 20220721
  Serious: Yes (Other)
  Sender: FDA-Public Use
  Company Number: CN-JNJFOC-20220454816

PATIENT

DRUGS (3)
  1. RISPERIDONE [Suspect]
     Active Substance: RISPERIDONE
     Indication: Product used for unknown indication
     Route: 065
  2. RISPERIDONE [Suspect]
     Active Substance: RISPERIDONE
     Route: 065
  3. RISPERDAL [Suspect]
     Active Substance: RISPERIDONE
     Indication: Product used for unknown indication
     Route: 048

REACTIONS (41)
  - Anticholinergic syndrome [Unknown]
  - Hypothyroidism [Unknown]
  - Tardive dyskinesia [Unknown]
  - Dystonia [Unknown]
  - Hyperprolactinaemia [Unknown]
  - Electrocardiogram QT prolonged [Unknown]
  - Hypertonia [Unknown]
  - Tremor [Unknown]
  - Extrapyramidal disorder [Unknown]
  - Restlessness [Unknown]
  - Tachycardia [Unknown]
  - Orthostatic hypotension [Unknown]
  - Dizziness [Unknown]
  - Akathisia [Unknown]
  - Tremor [Unknown]
  - Arrhythmia supraventricular [Unknown]
  - Nasal obstruction [Unknown]
  - Salivary hypersecretion [Unknown]
  - Vomiting [Unknown]
  - Drooling [Unknown]
  - Hepatic function abnormal [Unknown]
  - Constipation [Unknown]
  - Galactorrhoea [Unknown]
  - Amenorrhoea [Unknown]
  - Menstrual disorder [Unknown]
  - Blood uric acid increased [Unknown]
  - Blood prolactin increased [Unknown]
  - Blood glucose increased [Unknown]
  - Metabolic disorder [Unknown]
  - Weight increased [Unknown]
  - Somnolence [Unknown]
  - Blunted affect [Unknown]
  - Anxiety [Unknown]
  - White blood cell count decreased [Unknown]
  - Muscle discomfort [Unknown]
  - Ectropion [Unknown]
  - Oedema peripheral [Unknown]
  - Pyrexia [Unknown]
  - Vision blurred [Unknown]
  - Electrocardiogram abnormal [Unknown]
  - Polycystic ovaries [Unknown]
